FAERS Safety Report 26186618 (Version 1)
Quarter: 2025Q4

REPORT INFORMATION
  Report Type: Spontaneous
  Country: US (occurrence: None)
  Receive Date: 20251219
  Receipt Date: 20251219
  Transmission Date: 20260118
  Serious: Yes (Hospitalization)
  Sender: FDA-CTU
  Company Number: None

PATIENT
  Age: 73 Year
  Sex: Male

DRUGS (3)
  1. APIXABAN [Suspect]
     Active Substance: APIXABAN
     Indication: Atrial fibrillation
     Dosage: 5 MG BID PO
     Dates: start: 20250509, end: 20250729
  2. APIXABAN [Suspect]
     Active Substance: APIXABAN
     Indication: Heart valve incompetence
  3. ELIQUIS [Suspect]
     Active Substance: APIXABAN

REACTIONS (5)
  - Gastrointestinal haemorrhage [None]
  - Haemoglobin decreased [None]
  - Haematocrit decreased [None]
  - Diverticulum intestinal haemorrhagic [None]
  - Therapy cessation [None]

NARRATIVE: CASE EVENT DATE: 20250729
